FAERS Safety Report 26095118 (Version 3)
Quarter: 2025Q4

REPORT INFORMATION
  Report Type: Spontaneous
  Country: EU (occurrence: EU)
  Receive Date: 20251127
  Receipt Date: 20251217
  Transmission Date: 20260118
  Serious: Yes (Other)
  Sender: ALEXION PHARMACEUTICALS
  Company Number: EU-AstraZeneca-CH-00999074A

PATIENT
  Sex: Male

DRUGS (10)
  1. CALQUENCE [Suspect]
     Active Substance: ACALABRUTINIB
     Dosage: 2 X 100 MG DAILY
     Route: 065
     Dates: start: 20250927, end: 20251111
  2. CALQUENCE [Suspect]
     Active Substance: ACALABRUTINIB
     Dosage: 100 MILLIGRAM, QD
     Route: 065
     Dates: start: 20251112, end: 20251121
  3. CALQUENCE [Suspect]
     Active Substance: ACALABRUTINIB
     Dosage: 100 MILLIGRAM, BID
     Route: 065
     Dates: start: 20250927, end: 20251111
  4. CALQUENCE [Suspect]
     Active Substance: ACALABRUTINIB
     Dosage: 100 MILLIGRAM, QD
     Route: 065
     Dates: start: 20251112, end: 20251121
  5. Comirnaty [Concomitant]
     Route: 065
  6. TAMSULOSIN [Concomitant]
     Active Substance: TAMSULOSIN
     Route: 065
  7. INFLUENZA VIRUS VACCINE QUADRIVALENT TYPE A+B [Concomitant]
     Active Substance: INFLUENZA VIRUS VACCINE QUADRIVALENT TYPE A+B
     Route: 065
  8. AREXVY [Concomitant]
     Active Substance: RECOMBINANT RESPIRATORY SYNCYTIAL VIRUS PRE-FUSION F PROTEIN ANTIGEN
     Route: 065
  9. COVID-19 vaccine [Concomitant]
     Route: 065
  10. IRBESARTAN [Concomitant]
     Active Substance: IRBESARTAN
     Dosage: 150 MILLIGRAM

REACTIONS (5)
  - Immune thrombocytopenia [Unknown]
  - Full blood count abnormal [Unknown]
  - Adverse drug reaction [Unknown]
  - Leukopenia [Unknown]
  - Red blood cell count decreased [Unknown]

NARRATIVE: CASE EVENT DATE: 20250101
